FAERS Safety Report 7080938-X (Version None)
Quarter: 2010Q4

REPORT INFORMATION
  Report Type: 
  Country: None (occurrence: None)
  Receive Date: 20101102
  Receipt Date: 20101102
  Transmission Date: 20110411
  Serious: Yes (Hospitalization)
  Sender: FDA-Public Use
  Company Number: None

PATIENT
  Age: 44 Year
  Sex: Male
  Weight: 100 kg

DRUGS (8)
  1. OLMESARTAN MEDOXOMIL [Suspect]
     Indication: HYPERTENSION
     Dosage: 40 MG DAILY PO
     Route: 048
  2. SIMVASTATIN [Concomitant]
  3. MIRTAZAPINE [Concomitant]
  4. BUPROPION HCL [Suspect]
  5. DULOXETIME HYDROCHLORIDE [Concomitant]
  6. TRAZODONE HCL [Concomitant]
  7. ZOLPIDEM [Concomitant]
  8. ALCOHOL [Suspect]

REACTIONS (3)
  - ALCOHOL POISONING [None]
  - INCORRECT DOSE ADMINISTERED [None]
  - RENAL FAILURE ACUTE [None]
